FAERS Safety Report 19350467 (Version 1)
Quarter: 2021Q2

REPORT INFORMATION
  Report Type: Spontaneous
  Country: US (occurrence: US)
  Receive Date: 20210601
  Receipt Date: 20210601
  Transmission Date: 20210717
  Serious: Yes (Hospitalization)
  Sender: FDA-Public Use
  Company Number: None

PATIENT
  Age: 75 Year
  Sex: Female

DRUGS (7)
  1. TOPIRAMATE TAB 50MG [Concomitant]
     Dates: start: 20210525
  2. TRIHEXYPHEN TAB 2MG [Concomitant]
     Dates: start: 20210526
  3. MIDODRINE TAB 5MG [Concomitant]
     Dates: start: 20210401
  4. CLORAZ DIPOT TAB 7.5MG [Concomitant]
     Dates: start: 20210404
  5. BALCLOFEN TAB 10MG [Concomitant]
     Dates: start: 20210526
  6. CIPROFLAXACN SOL 0.3% [Concomitant]
     Dates: start: 20210525
  7. FORTEO [Suspect]
     Active Substance: TERIPARATIDE
     Indication: OSTEOPOROSIS
     Route: 058
     Dates: start: 20210225

REACTIONS (2)
  - Intentional dose omission [None]
  - Hospitalisation [None]

NARRATIVE: CASE EVENT DATE: 20210529
